FAERS Safety Report 10076445 (Version 1)
Quarter: 2014Q2

REPORT INFORMATION
  Report Type: Spontaneous
  Country: FR (occurrence: FR)
  Receive Date: 20140414
  Receipt Date: 20140414
  Transmission Date: 20141212
  Serious: Yes (Death)
  Sender: FDA-Public Use
  Company Number: FR-MALLINCKRODT-T201401793

PATIENT
  Age: 70 Year
  Sex: Male

DRUGS (1)
  1. OPTIJECT [Suspect]
     Indication: COMPUTERISED TOMOGRAM
     Dosage: UNK
     Route: 042
     Dates: start: 20140326, end: 20140326

REACTIONS (3)
  - Death [Fatal]
  - Decreased appetite [Unknown]
  - Fatigue [Unknown]
